FAERS Safety Report 7366961-6 (Version None)
Quarter: 2011Q1

REPORT INFORMATION
  Report Type: 
  Country: None (occurrence: None)
  Receive Date: 20110322
  Receipt Date: 20110316
  Transmission Date: 20110831
  Serious: No
  Sender: FDA-Public Use
  Company Number: US-PFIZER INC-2011058043

PATIENT
  Sex: Female

DRUGS (2)
  1. MOBIC [Concomitant]
     Dosage: UNK
  2. ARTHROTEC [Suspect]

REACTIONS (1)
  - ULCER [None]
